FAERS Safety Report 4800096-9 (Version None)
Quarter: 2005Q4

REPORT INFORMATION
  Report Type: 
  Country: None (occurrence: None)
  Receive Date: 20051012
  Receipt Date: 20051012
  Transmission Date: 20060501
  Serious: Yes (Hospitalization)
  Sender: FDA-Public Use
  Company Number: None

PATIENT
  Sex: Male
  Weight: 67.1324 kg

DRUGS (5)
  1. AMOXICILLIN [Suspect]
     Indication: DENTAL TREATMENT
     Dosage: PO [PRIOR TO ADMISSION]
     Route: 048
  2. AMOXICILLIN [Suspect]
     Indication: PREMEDICATION
     Dosage: PO [PRIOR TO ADMISSION]
     Route: 048
  3. LOPRESSOR [Concomitant]
  4. ASPIRIN [Concomitant]
  5. LOVASTATIN [Concomitant]

REACTIONS (2)
  - DYSARTHRIA [None]
  - SWOLLEN TONGUE [None]
